FAERS Safety Report 7492307-9 (Version None)
Quarter: 2011Q2

REPORT INFORMATION
  Report Type: 
  Country: None (occurrence: None)
  Receive Date: 20110519
  Receipt Date: 20110518
  Transmission Date: 20111010
  Serious: No
  Sender: FDA-Public Use
  Company Number: IT-ALLERGAN-1106406US

PATIENT
  Age: 37 Year
  Sex: Female

DRUGS (1)
  1. BOTULINUM TOXIN TYPE A [Suspect]
     Indication: SKIN WRINKLING
     Dosage: UNK
     Dates: start: 20080613, end: 20080613

REACTIONS (5)
  - SENSORY DISTURBANCE [None]
  - HEADACHE [None]
  - PHOTOPHOBIA [None]
  - OCULAR DISCOMFORT [None]
  - FATIGUE [None]
